FAERS Safety Report 7559543-4 (Version None)
Quarter: 2011Q2

REPORT INFORMATION
  Report Type: 
  Country: None (occurrence: None)
  Receive Date: 20110621
  Receipt Date: 20110610
  Transmission Date: 20111010
  Serious: Yes (Life-Threatening, Hospitalization)
  Sender: FDA-Public Use
  Company Number: JP-AMGEN-JPNCT2010008250

PATIENT
  Age: 41 Year
  Sex: Female
  Weight: 45 kg

DRUGS (24)
  1. DEXAMETHASONE SODIUM PHOSPHATE [Concomitant]
     Route: 042
  2. TALION [Concomitant]
     Route: 048
  3. EMEND [Concomitant]
     Route: 048
  4. PANITUMUMAB [Suspect]
     Indication: COLORECTAL CANCER
     Dosage: 6 MG/KG, Q2WK
     Route: 041
     Dates: start: 20101104, end: 20101118
  5. IRINOTECAN HCL [Suspect]
     Indication: COLORECTAL CANCER
     Dosage: 150 MG/M2, Q2WK
     Route: 041
     Dates: start: 20101104, end: 20101216
  6. DEXAMETHASONE SODIUM PHOSPHATE [Concomitant]
     Route: 042
  7. MAGNESIUM SULFATE [Concomitant]
     Route: 042
  8. MINOCYCLINE HCL [Concomitant]
     Route: 048
  9. DIFLAL [Concomitant]
     Route: 062
  10. LEUCOVORIN CALCIUM [Suspect]
     Indication: COLORECTAL CANCER
     Dosage: 200 MG/M2, Q2WK
     Route: 041
     Dates: start: 20101104, end: 20101216
  11. DEXAMETHASONE SODIUM PHOSPHATE [Concomitant]
  12. ALOXI [Concomitant]
     Route: 042
  13. HACHIAZULE [Concomitant]
     Route: 049
  14. FLUOROURACIL [Suspect]
     Indication: COLORECTAL CANCER
     Route: 041
     Dates: start: 20101104, end: 20101216
  15. ANTIHISTAMINES [Concomitant]
     Indication: PROPHYLAXIS
     Route: 065
  16. CORTICOSTEROIDS [Concomitant]
     Indication: PROPHYLAXIS
     Route: 065
  17. MAGNESIUM SULFATE [Concomitant]
     Dosage: 2 UNK, UNK
     Route: 042
  18. RABEPRAZOLE SODIUM [Concomitant]
     Route: 048
  19. GASLON N OD [Concomitant]
     Indication: STOMATITIS
     Route: 048
  20. PANITUMUMAB [Suspect]
     Dosage: 4.8 MG/KG, Q2WK
     Route: 041
     Dates: start: 20101216, end: 20101216
  21. GLYCYRON [Concomitant]
     Route: 048
  22. MAGNESIUM SULFATE [Concomitant]
  23. ELENTAL [Concomitant]
     Route: 048
  24. URSO 250 [Concomitant]
     Route: 048

REACTIONS (6)
  - STOMATITIS [None]
  - HYPOMAGNESAEMIA [None]
  - SKIN FISSURES [None]
  - ELECTROCARDIOGRAM QT PROLONGED [None]
  - HYPOCALCAEMIA [None]
  - DRY SKIN [None]
